FAERS Safety Report 12834460 (Version 1)
Quarter: 2016Q4

REPORT INFORMATION
  Report Type: Spontaneous
  Country: BR (occurrence: BR)
  Receive Date: 20161010
  Receipt Date: 20161010
  Transmission Date: 20170207
  Serious: Yes (Other)
  Sender: FDA-Public Use
  Company Number: BR-ALLERGAN-1671131US

PATIENT
  Sex: Female

DRUGS (3)
  1. OPTIVE UD [Suspect]
     Active Substance: CARBOXYMETHYLCELLULOSE SODIUM\GLYCERIN
     Indication: PRODUCT USED FOR UNKNOWN INDICATION
     Dosage: UNK
     Route: 047
  2. GENTEL [Concomitant]
     Indication: PRODUCT USED FOR UNKNOWN INDICATION
  3. PRED FORT [Suspect]
     Active Substance: PREDNISOLONE ACETATE
     Indication: INFLAMMATION
     Dosage: UNK
     Route: 047
     Dates: start: 20160918

REACTIONS (1)
  - Herpes ophthalmic [Not Recovered/Not Resolved]
